APPROVED DRUG PRODUCT: OXYMORPHONE HYDROCHLORIDE
Active Ingredient: OXYMORPHONE HYDROCHLORIDE
Strength: 10MG
Dosage Form/Route: TABLET;ORAL
Application: A210175 | Product #002 | TE Code: AB
Applicant: ASCENT PHARMACEUTICALS INC
Approved: Feb 2, 2018 | RLD: No | RS: No | Type: RX